FAERS Safety Report 8781636 (Version 1)
Quarter: 2012Q4

REPORT INFORMATION
  Report Type: Report from Study
  Country: US (occurrence: US)
  Receive Date: 20120913
  Receipt Date: 20120913
  Transmission Date: 20130627
  Serious: No
  Sender: FDA-Public Use
  Company Number: US-VERTEX PHARMACEUTICAL INC.-AE-2012-007868

PATIENT
  Age: 25 Year
  Sex: Male
  Weight: 122.7 kg

DRUGS (7)
  1. INCIVEK [Suspect]
     Indication: HEPATITIS C
     Route: 048
     Dates: start: 20120421
  2. PEGASYS [Concomitant]
     Indication: HEPATITIS C
     Route: 058
     Dates: start: 20120421
  3. RIBAVIRIN [Concomitant]
     Indication: HEPATITIS C
     Route: 048
     Dates: start: 20120421, end: 20120510
  4. CELEXA [Concomitant]
  5. LEVOTHYROXIN [Concomitant]
  6. LISINOPRIL [Concomitant]
  7. METHADONE [Concomitant]

REACTIONS (1)
  - Anaemia [Unknown]
